FAERS Safety Report 16686668 (Version 5)
Quarter: 2019Q4

REPORT INFORMATION
  Report Type: Report from Study
  Country: KR (occurrence: KR)
  Receive Date: 20190809
  Receipt Date: 20191025
  Transmission Date: 20200122
  Serious: Yes (Hospitalization)
  Sender: FDA-Public Use
  Company Number: KR-CELLTRION INC.-2018KR020138

PATIENT

DRUGS (10)
  1. HERZUMA [Suspect]
     Active Substance: TRASTUZUMAB-PKRB
     Dosage: 6 MG/KG (353.4 MG) EVERY 3 WEEKS
     Route: 042
     Dates: start: 20190308, end: 20191002
  2. CISPLATIN. [Suspect]
     Active Substance: CISPLATIN
     Indication: CHEMOTHERAPY
     Dosage: 60 MG/M2, 97.8 MG EVERY 3 WEEKS
     Route: 042
     Dates: start: 20180711, end: 20181017
  3. XELODA [Suspect]
     Active Substance: CAPECITABINE
     Indication: CHEMOTHERAPY
     Dosage: 750 MG/M2 (2400 MG) EVERY 3 WEEKS
     Route: 048
     Dates: start: 20180704, end: 20190220
  4. HERZUMA [Suspect]
     Active Substance: TRASTUZUMAB-PKRB
     Indication: HER-2 POSITIVE GASTRIC CANCER
     Dosage: 471.2 MG, 3 WEEKS
     Route: 042
     Dates: start: 20180518, end: 20180518
  5. XELODA [Suspect]
     Active Substance: CAPECITABINE
     Indication: HER-2 POSITIVE GASTRIC CANCER
     Dosage: 1000 MG/M2 (3200 MG) EVERY 3 WEEKS
     Route: 048
     Dates: start: 20180518, end: 20180703
  6. PEMBROLIZUMAB. [Suspect]
     Active Substance: PEMBROLIZUMAB
     Indication: CHEMOTHERAPY
     Dosage: 200 MG,  EVERY 3 WEEKS
     Route: 042
     Dates: start: 20190308
  7. CISPLATIN. [Suspect]
     Active Substance: CISPLATIN
     Indication: HER-2 POSITIVE GASTRIC CANCER
     Dosage: 130.4 MG,  3 WEEKS
     Route: 042
     Dates: start: 20180518, end: 20180710
  8. HERZUMA [Suspect]
     Active Substance: TRASTUZUMAB-PKRB
     Indication: CHEMOTHERAPY
     Dosage: 6 MG/KG (353.4 MG) EVERY 3 WEEKS
     Route: 042
     Dates: start: 20180518, end: 20190220
  9. PEMBROLIZUMAB. [Suspect]
     Active Substance: PEMBROLIZUMAB
     Indication: HER-2 POSITIVE GASTRIC CANCER
     Dosage: 200 MG,  EVERY 3 WEEKS
     Route: 042
     Dates: start: 20180518, end: 20190220
  10. XELODA [Suspect]
     Active Substance: CAPECITABINE
     Dosage: 750 MG/M2 (2400 MG) EVERY 3 WEEKS
     Route: 048
     Dates: start: 20190308, end: 20190403

REACTIONS (4)
  - Anal fissure [Recovered/Resolved]
  - Gastric ulcer [Recovered/Resolved]
  - Obstruction gastric [Recovering/Resolving]
  - Haemorrhoids [Recovered/Resolved]

NARRATIVE: CASE EVENT DATE: 20191002
